FAERS Safety Report 15571074 (Version 5)
Quarter: 2019Q1

REPORT INFORMATION
  Report Type: Report from Study
  Country: US (occurrence: US)
  Receive Date: 20181031
  Receipt Date: 20190128
  Transmission Date: 20190417
  Serious: Yes (Other)
  Sender: FDA-Public Use
  Company Number: US-PFIZER INC-2018311626

PATIENT
  Age: 81 Year
  Sex: Female

DRUGS (2)
  1. IBRANCE [Suspect]
     Active Substance: PALBOCICLIB
     Indication: BREAST CANCER METASTATIC
     Dosage: 125 MG, CYCLIC (DAILY, 21 DAYS ON AND 7 DAYS OFF)
     Route: 048
     Dates: start: 20180726
  2. FEMARA [Concomitant]
     Active Substance: LETROZOLE
     Dosage: UNK, DAILY

REACTIONS (33)
  - Lip dry [Unknown]
  - Pruritus [Unknown]
  - Dysgeusia [Unknown]
  - Renal impairment [Recovered/Resolved]
  - Hot flush [Recovered/Resolved]
  - Malaise [Not Recovered/Not Resolved]
  - Erythema [Unknown]
  - Insomnia [Unknown]
  - Fatigue [Unknown]
  - Blood glucose decreased [Recovering/Resolving]
  - Sensation of foreign body [Unknown]
  - Dysuria [Recovered/Resolved]
  - Choking sensation [Unknown]
  - Breast pain [Unknown]
  - Muscular weakness [Unknown]
  - Pain in extremity [Recovered/Resolved]
  - Alopecia [Unknown]
  - Blood glucose fluctuation [Unknown]
  - Diarrhoea [Unknown]
  - Nausea [Recovered/Resolved]
  - Lip exfoliation [Unknown]
  - Foreign body in respiratory tract [Unknown]
  - Decreased appetite [Unknown]
  - Urinary tract infection [Recovered/Resolved]
  - Headache [Unknown]
  - Weight decreased [Unknown]
  - Hypertension [Recovered/Resolved]
  - Rash pruritic [Unknown]
  - Back pain [Recovering/Resolving]
  - Cystitis [Unknown]
  - Dysphonia [Unknown]
  - Pain [Recovered/Resolved]
  - Anorectal discomfort [Unknown]

NARRATIVE: CASE EVENT DATE: 2018
